FAERS Safety Report 16224766 (Version 1)
Quarter: 2019Q2

REPORT INFORMATION
  Report Type: Report from Study
  Country: US (occurrence: US)
  Receive Date: 20190422
  Receipt Date: 20190422
  Transmission Date: 20190711
  Serious: Yes (Other)
  Sender: FDA-Public Use
  Company Number: US-JNJFOC-20190134883

PATIENT
  Sex: Female

DRUGS (20)
  1. IMBRUVICA [Suspect]
     Active Substance: IBRUTINIB
     Indication: B-CELL LYMPHOMA
     Route: 048
     Dates: start: 20180104, end: 20180427
  2. IMBRUVICA [Suspect]
     Active Substance: IBRUTINIB
     Indication: B-CELL LYMPHOMA
     Route: 048
     Dates: start: 20170317, end: 20180513
  3. HYDROCHLOROTHIAZIDE. [Concomitant]
     Active Substance: HYDROCHLOROTHIAZIDE
  4. IBUPROFEN. [Concomitant]
     Active Substance: IBUPROFEN
  5. LOSARTAN. [Concomitant]
     Active Substance: LOSARTAN
  6. ASPIR 81 [Concomitant]
     Active Substance: ASPIRIN
  7. IMBRUVICA [Suspect]
     Active Substance: IBRUTINIB
     Indication: B-CELL LYMPHOMA
     Route: 048
     Dates: start: 20180428
  8. ANASTROZOLE. [Concomitant]
     Active Substance: ANASTROZOLE
  9. CORICIDIN HBP COLD AND FLU [Concomitant]
     Active Substance: ACETAMINOPHEN\CHLORPHENIRAMINE MALEATE
  10. MELATONIN [Concomitant]
     Active Substance: MELATONIN
  11. TYLENOL [Concomitant]
     Active Substance: ACETAMINOPHEN
  12. IMBRUVICA [Suspect]
     Active Substance: IBRUTINIB
     Indication: B-CELL LYMPHOMA
     Route: 048
     Dates: start: 20180514
  13. PRESERVISION AREDS [Concomitant]
     Active Substance: MINERALS\VITAMINS
  14. CENTRUM [Concomitant]
     Active Substance: VITAMINS
  15. MECLIZINE [Concomitant]
     Active Substance: MECLIZINE HYDROCHLORIDE
  16. TOLNAFTATE. [Concomitant]
     Active Substance: TOLNAFTATE
  17. ZOMETA [Concomitant]
     Active Substance: ZOLEDRONIC ACID
  18. CALCIUM [Concomitant]
     Active Substance: CALCIUM
  19. ATENOLOL. [Concomitant]
     Active Substance: ATENOLOL
  20. AMLODIPINE [Concomitant]
     Active Substance: AMLODIPINE BESYLATE

REACTIONS (4)
  - Cataract [Not Recovered/Not Resolved]
  - Eye disorder [Unknown]
  - Surgery [Unknown]
  - Blood immunoglobulin M increased [Unknown]
